FAERS Safety Report 8528541 (Version 4)
Quarter: 2012Q4

REPORT INFORMATION
  Report Type: 
  Country: AU (occurrence: AU)
  Receive Date: 20120424
  Receipt Date: 20121009
  Transmission Date: 20130627
  Serious: Yes (Hospitalization, Other)
  Sender: FDA-Public Use
  Company Number: AU-ROCHE-1062361

PATIENT
  Age: 60 Year
  Sex: Male

DRUGS (1)
  1. LUCENTIS [Suspect]
     Indication: AGE-RELATED MACULAR DEGENERATION
     Route: 050
     Dates: start: 20120404, end: 20120404

REACTIONS (3)
  - Endophthalmitis [Recovered/Resolved]
  - Bacillus infection [Recovered/Resolved]
  - Visual acuity reduced [Recovered/Resolved]
